FAERS Safety Report 8812313 (Version 1)
Quarter: 2012Q4

REPORT INFORMATION
  Report Type: 
  Country: US (occurrence: US)
  Receive Date: 20120927
  Receipt Date: 20120927
  Transmission Date: 20130627
  Serious: No
  Sender: FDA-Public Use
  Company Number: US-VERTEX PHARMACEUTICAL INC.-AE-2012-006149

PATIENT
  Age: 63 Year
  Sex: Female
  Weight: 54.42 kg

DRUGS (11)
  1. VX-950 [Suspect]
     Indication: HEPATITIS C
     Dosage: 750 mg, bid
     Route: 048
     Dates: start: 20120303
  2. PEGASYS [Concomitant]
     Indication: HEPATITIS C
     Dosage: 180 ?g, UNK
     Route: 058
     Dates: start: 20120303
  3. RIBAVIRIN [Concomitant]
     Indication: HEPATITIS C
     Dosage: 400 mg, bid
     Route: 048
  4. RIBAVIRIN [Concomitant]
     Dosage: 200 mg, bid
     Route: 048
     Dates: start: 20120316
  5. DETROL LA [Concomitant]
     Dosage: 2 mg, UNK
     Route: 048
  6. BENADRYL                           /01563701/ [Concomitant]
     Dosage: 25 mg, UNK
     Route: 048
  7. ATENOLOL [Concomitant]
     Dosage: 50 mg, UNK
     Route: 048
  8. OMEPRAZOLE [Concomitant]
     Dosage: 20 mg, UNK
     Route: 048
  9. CALCIUM [Concomitant]
     Route: 048
  10. MULTIVITAMIN                       /00097801/ [Concomitant]
     Route: 048
  11. PROCRIT                            /00909301/ [Concomitant]
     Dosage: 4000/ML
     Route: 058

REACTIONS (7)
  - Influenza like illness [Unknown]
  - Dyspnoea [Unknown]
  - Pyrexia [Unknown]
  - Decreased appetite [Unknown]
  - Fatigue [Unknown]
  - Anaemia [Unknown]
  - Dysgeusia [Unknown]
